FAERS Safety Report 6839299-0 (Version None)
Quarter: 2010Q3

REPORT INFORMATION
  Report Type: 
  Country: None (occurrence: None)
  Receive Date: 20100714
  Receipt Date: 20100629
  Transmission Date: 20110219
  Serious: Yes (Death, Other)
  Sender: FDA-Public Use
  Company Number: PHHY2010JP43753

PATIENT
  Sex: Female
  Weight: 58 kg

DRUGS (19)
  1. ICL670A ICL+DISTAB [Suspect]
     Indication: MYELODYSPLASTIC SYNDROME
     Dosage: 1000 MG DAILY
     Route: 048
     Dates: start: 20080904, end: 20080925
  2. ICL670A ICL+DISTAB [Suspect]
     Indication: IRON OVERLOAD
     Dosage: 125MG DAILY
     Route: 048
     Dates: start: 20081014, end: 20081201
  3. ICL670A ICL+DISTAB [Suspect]
     Dosage: 250 MG DAILY
     Route: 048
     Dates: start: 20081202, end: 20090303
  4. ICL670A ICL+DISTAB [Suspect]
     Dosage: 250 MG DAILY
     Route: 048
     Dates: start: 20090417, end: 20090511
  5. ICL670A ICL+DISTAB [Suspect]
     Dosage: 375 MG DAILY
     Route: 048
     Dates: start: 20090512, end: 20090525
  6. ICL670A ICL+DISTAB [Suspect]
     Dosage: 500 MG DAILY
     Route: 048
     Dates: start: 20090526
  7. ZANTAC [Concomitant]
     Indication: PROPHYLAXIS
     Dosage: 150 MG, UNK
     Route: 048
     Dates: start: 20080904
  8. ZANTAC [Concomitant]
     Dosage: 150 MG, UNK
     Route: 048
  9. KAMIKIHITOU [Concomitant]
     Indication: MYELODYSPLASTIC SYNDROME
     Dosage: 7.5 MG, UNK
     Route: 048
     Dates: start: 20080904
  10. KAMIKIHITOU [Concomitant]
     Dosage: 7.5 MG, UNK
     Route: 048
  11. GLAKAY [Concomitant]
     Indication: MYELODYSPLASTIC SYNDROME
     Dosage: 30 MG, UNK
     Route: 048
     Dates: start: 20080904
  12. GLAKAY [Concomitant]
     Dosage: 45 MG, UNK
     Route: 048
  13. LIPIDIL [Concomitant]
     Dosage: 1 DF, UNK
     Route: 048
  14. LIPIDIL [Concomitant]
     Dosage: 1 DF, UNK
     Route: 048
     Dates: start: 20080904
  15. MUCOSTA [Concomitant]
     Indication: PROPHYLAXIS
     Dosage: 3 DF, UNK
     Route: 048
     Dates: start: 20080904
  16. MUCOSTA [Concomitant]
     Dosage: 300 MG, UNK
     Route: 048
  17. MAGMITT [Concomitant]
     Dosage: 6 DF, UNK
     Route: 048
     Dates: start: 20080904
  18. MAGMITT [Concomitant]
     Dosage: 990 MG, UNK
     Route: 048
  19. RED BLOOD CELLS [Concomitant]
     Dosage: 2 UNITS EVERY 2 WEEKS
     Dates: start: 20080916, end: 20090925

REACTIONS (6)
  - ALANINE AMINOTRANSFERASE INCREASED [None]
  - ASPARTATE AMINOTRANSFERASE INCREASED [None]
  - DECREASED APPETITE [None]
  - PNEUMONIA [None]
  - RESPIRATORY FAILURE [None]
  - WHITE BLOOD CELL COUNT DECREASED [None]
